FAERS Safety Report 7227365-X (Version None)
Quarter: 2011Q1

REPORT INFORMATION
  Report Type: 
  Country: None (occurrence: None)
  Receive Date: 20110114
  Receipt Date: 20110106
  Transmission Date: 20110831
  Serious: Yes (Hospitalization)
  Sender: FDA-Public Use
  Company Number: BR-MEDIMMUNE-MEDI-0012175

PATIENT
  Sex: Female
  Weight: 6.6 kg

DRUGS (3)
  1. FERROGLYCINATE CHELATE [Concomitant]
     Route: 048
  2. PROTOVIT [Concomitant]
     Route: 048
  3. SYNAGIS [Suspect]
     Indication: BRONCHOPULMONARY DYSPLASIA
     Route: 030
     Dates: start: 20100501, end: 20100501

REACTIONS (5)
  - COUGH [None]
  - FATIGUE [None]
  - VOMITING [None]
  - WHEEZING [None]
  - LOWER RESPIRATORY TRACT INFECTION [None]
